FAERS Safety Report 19743406 (Version 2)
Quarter: 2021Q3

REPORT INFORMATION
  Report Type: Report from Study
  Country: HN (occurrence: HN)
  Receive Date: 20210824
  Receipt Date: 20210909
  Transmission Date: 20211014
  Serious: Yes (Other)
  Sender: FDA-Public Use
  Company Number: NVSC2021HN189585

PATIENT
  Sex: Male
  Weight: 83.9 kg

DRUGS (2)
  1. VYMADA [Suspect]
     Active Substance: SACUBITRIL\VALSARTAN
     Indication: CARDIAC DISORDER
     Dosage: 100 MG, QD
     Route: 065
     Dates: start: 2020
  2. RANEXA [Concomitant]
     Active Substance: RANOLAZINE
     Indication: ANGINA PECTORIS
     Dosage: 1 DF, QD
     Route: 048
     Dates: start: 2020

REACTIONS (4)
  - Tremor [Unknown]
  - Parkinson^s disease [Unknown]
  - Hypoacusis [Unknown]
  - Infarction [Unknown]

NARRATIVE: CASE EVENT DATE: 2020
